FAERS Safety Report 6116750-5 (Version None)
Quarter: 2009Q1

REPORT INFORMATION
  Report Type: 
  Country: None (occurrence: None)
  Receive Date: 20090314
  Receipt Date: 20081222
  Transmission Date: 20090719
  Serious: No
  Sender: FDA-Public Use
  Company Number: US-ABBOTT-08P-163-0494449-00

PATIENT
  Sex: Female
  Weight: 86.26 kg

DRUGS (9)
  1. HUMIRA [Suspect]
     Indication: RHEUMATOID ARTHRITIS
     Route: 058
     Dates: start: 20080601
  2. UNKNOWN PAIN PATCH [Concomitant]
     Indication: RHEUMATOID ARTHRITIS
     Dosage: UNKNOWN
  3. PREDNISONE [Concomitant]
     Indication: RHEUMATOID ARTHRITIS
     Route: 048
  4. METHOTREXATE [Concomitant]
     Indication: RHEUMATOID ARTHRITIS
     Dosage: 8 TABS ON DAY OF HUMIRA
     Route: 048
  5. PROTONIX [Concomitant]
     Indication: GASTRIC DISORDER
     Route: 048
  6. GLYBURIDE [Concomitant]
     Indication: DIABETES MELLITUS
     Dosage: 1/2 TABELET DAILY
     Route: 048
  7. METFORMIN HCL [Concomitant]
     Indication: DIABETES MELLITUS
     Route: 048
  8. FOLIC ACID [Concomitant]
     Indication: DRUG USE FOR UNKNOWN INDICATION
     Dosage: 1 PILL BID  1 PILL BID
     Route: 048
  9. ENABLEX [Concomitant]
     Indication: INCONTINENCE
     Dosage: 1 TAB A DAY
     Route: 048

REACTIONS (4)
  - ARTHROPATHY [None]
  - GAIT DISTURBANCE [None]
  - JOINT EFFUSION [None]
  - PAIN IN EXTREMITY [None]
